FAERS Safety Report 8832222 (Version 1)
Quarter: 2012Q4

REPORT INFORMATION
  Report Type: 
  Country: US (occurrence: US)
  Receive Date: 20121009
  Receipt Date: 20121009
  Transmission Date: 20130627
  Serious: Yes (Hospitalization)
  Sender: FDA-Public Use
  Company Number: US-B.I. PHARMACEUTICALS,INC./RIDGEFIELD-2012-BP-24578BP

PATIENT
  Sex: Female
  Weight: 52 kg

DRUGS (7)
  1. SPIRIVA [Suspect]
     Indication: CHRONIC OBSTRUCTIVE PULMONARY DISEASE
     Dosage: 18 mcg
     Route: 055
     Dates: start: 2009
  2. MICARDIS [Suspect]
     Indication: HYPERTENSION
     Dosage: 80 mg
     Route: 048
     Dates: end: 201205
  3. COUMADIN [Concomitant]
     Indication: MITRAL VALVE STENOSIS
     Dosage: 2 mg
     Route: 048
  4. COUMADIN [Concomitant]
     Indication: ATRIAL FIBRILLATION
  5. ANTI-EMETIC [Concomitant]
     Indication: NAUSEA
     Route: 048
  6. PROPYLTHIOURACIL [Concomitant]
     Indication: HYPERTENSION
     Dosage: 100 mg
     Route: 048
  7. DILTIAZEM [Concomitant]
     Indication: CARDIAC DISORDER
     Dosage: 240 mg
     Route: 048

REACTIONS (6)
  - Cervix carcinoma [Recovered/Resolved]
  - Ovarian cancer [Recovered/Resolved]
  - Abdominal pain upper [Recovered/Resolved]
  - Pneumonia [Recovered/Resolved]
  - Hypotension [Recovered/Resolved]
  - Nausea [Recovered/Resolved]
